FAERS Safety Report 7006533-6 (Version None)
Quarter: 2010Q3

REPORT INFORMATION
  Report Type: 
  Country: None (occurrence: None)
  Receive Date: 20100921
  Receipt Date: 20100921
  Transmission Date: 20110219
  Serious: Yes (Hospitalization)
  Sender: FDA-Public Use
  Company Number: None

PATIENT
  Age: 89 Year
  Sex: Female
  Weight: 45.2 kg

DRUGS (1)
  1. LEXAPRO [Suspect]
     Indication: DEPRESSION

REACTIONS (3)
  - DYSARTHRIA [None]
  - FALL [None]
  - HYPONATRAEMIA [None]
